FAERS Safety Report 6744586-0 (Version None)
Quarter: 2010Q2

REPORT INFORMATION
  Report Type: 
  Country: None (occurrence: None)
  Receive Date: 20100527
  Receipt Date: 20100521
  Transmission Date: 20101027
  Serious: Yes (Life-Threatening)
  Sender: FDA-Public Use
  Company Number: PHHY2010ES33448

PATIENT
  Age: 75 Year
  Sex: Female

DRUGS (1)
  1. OSPOR [Suspect]
     Indication: OSTEOPOROSIS
     Dosage: UNK
     Route: 045
     Dates: start: 20100101, end: 20100101

REACTIONS (5)
  - CHEST DISCOMFORT [None]
  - PALPITATIONS [None]
  - PRURITUS [None]
  - SKIN DISCOLOURATION [None]
  - SKIN REACTION [None]
